FAERS Safety Report 23995115 (Version 1)
Quarter: 2024Q2

REPORT INFORMATION
  Report Type: Spontaneous
  Country: US (occurrence: US)
  Receive Date: 20240620
  Receipt Date: 20240620
  Transmission Date: 20240716
  Serious: No
  Sender: FDA-Public Use
  Company Number: US-ELI_LILLY_AND_COMPANY-US202406012821

PATIENT
  Age: 25 Year
  Sex: Female

DRUGS (1)
  1. VERZENIO [Suspect]
     Active Substance: ABEMACICLIB
     Indication: Breast cancer female
     Dosage: 150 MG, BID
     Route: 048

REACTIONS (8)
  - Abdominal pain upper [Unknown]
  - Hot flush [Unknown]
  - Neuropathy peripheral [Unknown]
  - Mood swings [Unknown]
  - Insomnia [Unknown]
  - Product dose omission issue [Unknown]
  - Decreased appetite [Unknown]
  - Diarrhoea [Unknown]
